FAERS Safety Report 16186478 (Version 1)
Quarter: 2019Q2

REPORT INFORMATION
  Report Type: Spontaneous
  Country: JP (occurrence: JP)
  Receive Date: 20190411
  Receipt Date: 20190411
  Transmission Date: 20190711
  Serious: Yes (Other)
  Sender: FDA-Public Use
  Company Number: JP-TEVA-2019-JP-1035153

PATIENT
  Age: 85 Year
  Sex: Male

DRUGS (1)
  1. TOSUFLOXACIN [Suspect]
     Active Substance: TOSUFLOXACIN TOSYLATE
     Indication: PNEUMONIA
     Route: 065

REACTIONS (1)
  - Infection masked [Recovering/Resolving]
